FAERS Safety Report 8571469-6 (Version None)
Quarter: 2012Q2

REPORT INFORMATION
  Report Type: 
  Country: None (occurrence: None)
  Receive Date: 20120418
  Receipt Date: 20090227
  Transmission Date: 20120825
  Serious: Yes (Other)
  Sender: FDA-Public Use
  Company Number: PHHY2009US06584

PATIENT

DRUGS (1)
  1. DIOVAN HCT [Suspect]
     Dosage: ORAL
     Route: 048

REACTIONS (1)
  - HYPERTENSION [None]
